FAERS Safety Report 23859124 (Version 1)
Quarter: 2024Q2

REPORT INFORMATION
  Report Type: Spontaneous
  Country: US (occurrence: US)
  Receive Date: 20240515
  Receipt Date: 20240515
  Transmission Date: 20240716
  Serious: No
  Sender: FDA-Public Use
  Company Number: US-BAYER-2024A070500

PATIENT
  Age: 13 Year
  Sex: Male

DRUGS (1)
  1. KOVALTRY [Suspect]
     Active Substance: ANTIHEMOPHILIC FACTOR, HUMAN RECOMBINANT
     Indication: Haemorrhage
     Dosage: INFUSE 2315 UNITS (+/- 10%) EVERY 12 HOURS AS NEEDED FOR

REACTIONS (1)
  - Limb injury [None]

NARRATIVE: CASE EVENT DATE: 20240509
